FAERS Safety Report 11516755 (Version 1)
Quarter: 2015Q3

REPORT INFORMATION
  Report Type: Spontaneous
  Country: US (occurrence: None)
  Receive Date: 20150916
  Receipt Date: 20150916
  Transmission Date: 20151125
  Serious: Yes (Hospitalization)
  Sender: FDA-Public Use
  Company Number: None

PATIENT
  Age: 70 Year
  Sex: Male
  Weight: 89.3 kg

DRUGS (1)
  1. ACETAMINOPHEN/HYDROCODONE [Suspect]
     Active Substance: ACETAMINOPHEN\HYDROCODONE
     Indication: PAIN
     Dates: start: 20150406, end: 20150429

REACTIONS (7)
  - Rib fracture [None]
  - Fall [None]
  - Abnormal behaviour [None]
  - Delirium [None]
  - Clavicle fracture [None]
  - Pain [None]
  - Contusion [None]

NARRATIVE: CASE EVENT DATE: 20150416
